FAERS Safety Report 12885027 (Version 11)
Quarter: 2018Q4

REPORT INFORMATION
  Report Type: Spontaneous
  Country: AT (occurrence: AT)
  Receive Date: 20161026
  Receipt Date: 20181207
  Transmission Date: 20190204
  Serious: Yes (Hospitalization, Disabling, Other)
  Sender: FDA-Public Use
  Company Number: AT-PFIZER INC-2016496015

PATIENT
  Age: 37 Year
  Sex: Female

DRUGS (4)
  1. LYRICA [Suspect]
     Active Substance: PREGABALIN
     Dosage: 100 MG, 1X/DAY
  2. LYRICA [Suspect]
     Active Substance: PREGABALIN
     Indication: PROCEDURAL PAIN
     Dosage: 50 MG, DAILY
     Dates: end: 20150710
  3. LYRICA [Suspect]
     Active Substance: PREGABALIN
     Indication: PAIN
     Dosage: 50 MG, 2X/DAY (DIFFERENTLY REPORTED ALSO WITH 100MG, 1X/DAY)
     Dates: start: 201305, end: 201411
  4. ANAFRANIL [Concomitant]
     Active Substance: CLOMIPRAMINE HYDROCHLORIDE
     Dosage: 25 MG, AS NEEDED
     Dates: end: 201404

REACTIONS (29)
  - Cortisol abnormal [Unknown]
  - Withdrawal syndrome [Recovered/Resolved with Sequelae]
  - Pelvic congestion [Unknown]
  - Disturbance in attention [Not Recovered/Not Resolved]
  - Nausea [Unknown]
  - Generalised anxiety disorder [Unknown]
  - Crying [Unknown]
  - Hallucination [Unknown]
  - Obsessive-compulsive disorder [Recovered/Resolved]
  - Tremor [Unknown]
  - Agitation [Unknown]
  - Fear [Unknown]
  - Akathisia [Unknown]
  - Condition aggravated [Recovering/Resolving]
  - Obsessive thoughts [Recovering/Resolving]
  - Nervous system disorder [Unknown]
  - Compulsions [Not Recovered/Not Resolved]
  - Sleep disorder [Unknown]
  - Depression [Unknown]
  - Learning disorder [Not Recovered/Not Resolved]
  - Somatic symptom disorder [Unknown]
  - Negative thoughts [Recovering/Resolving]
  - Cognitive disorder [Not Recovered/Not Resolved]
  - Memory impairment [Not Recovered/Not Resolved]
  - Aggression [Unknown]
  - Violence-related symptom [Recovered/Resolved]
  - Drug intolerance [Recovered/Resolved]
  - Fatigue [Unknown]
  - Hypomania [Unknown]

NARRATIVE: CASE EVENT DATE: 201411
